FAERS Safety Report 25514981 (Version 1)
Quarter: 2025Q3

REPORT INFORMATION
  Report Type: Spontaneous
  Country: US (occurrence: US)
  Receive Date: 20250703
  Receipt Date: 20250703
  Transmission Date: 20251021
  Serious: No
  Sender: RADIUS PHARM
  Company Number: US-RADIUS HEALTH INC.-US-RADIUS-25047707

PATIENT
  Sex: Male

DRUGS (8)
  1. TYMLOS [Suspect]
     Active Substance: ABALOPARATIDE
     Indication: Bone density decreased
     Dosage: 80 MICROGRAM, QD
     Route: 058
     Dates: start: 202311, end: 202404
  2. KEPPRA [Concomitant]
     Active Substance: LEVETIRACETAM
     Indication: Seizure
     Route: 065
  3. RUFINAMIDE [Concomitant]
     Active Substance: RUFINAMIDE
     Indication: Seizure
     Route: 065
  4. CLOBAZAM [Concomitant]
     Active Substance: CLOBAZAM
     Indication: Seizure
     Route: 065
  5. ESOMEPRAZOLE [Concomitant]
     Active Substance: ESOMEPRAZOLE
     Indication: Gastrointestinal disorder
     Route: 065
  6. MONTELUKAST [Concomitant]
     Active Substance: MONTELUKAST
     Indication: Hypersensitivity
     Route: 065
  7. FLONASE [Concomitant]
     Active Substance: FLUTICASONE PROPIONATE
     Indication: Product used for unknown indication
  8. PURESENNA [Concomitant]
     Indication: Constipation

REACTIONS (5)
  - Gastrointestinal disorder [Unknown]
  - Injection site vesicles [Recovered/Resolved]
  - Injection site pain [Recovered/Resolved]
  - Intentional dose omission [Unknown]
  - Device delivery system issue [Recovered/Resolved]

NARRATIVE: CASE EVENT DATE: 20230101
